FAERS Safety Report 13661778 (Version 1)
Quarter: 2017Q2

REPORT INFORMATION
  Report Type: Spontaneous
  Country: CA (occurrence: CA)
  Receive Date: 20170616
  Receipt Date: 20170616
  Transmission Date: 20170830
  Serious: Yes (Other)
  Sender: FDA-Public Use
  Company Number: CA-SA-2017SA105804

PATIENT
  Age: 65 Year
  Sex: Female

DRUGS (5)
  1. ARAVA [Suspect]
     Active Substance: LEFLUNOMIDE
     Route: 048
  2. PLAQUENIL [Concomitant]
     Active Substance: HYDROXYCHLOROQUINE SULFATE
     Route: 048
  3. XELJANZ [Suspect]
     Active Substance: TOFACITINIB CITRATE
     Route: 048
  4. METHOTREXATE. [Suspect]
     Active Substance: METHOTREXATE
     Indication: RHEUMATOID ARTHRITIS
     Route: 058
  5. ENBREL [Suspect]
     Active Substance: ETANERCEPT
     Indication: RHEUMATOID ARTHRITIS
     Route: 058

REACTIONS (10)
  - Hepatic enzyme increased [Not Recovered/Not Resolved]
  - Drug ineffective [Unknown]
  - Pain [Not Recovered/Not Resolved]
  - Peripheral swelling [Not Recovered/Not Resolved]
  - Bone density abnormal [Not Recovered/Not Resolved]
  - Joint swelling [Not Recovered/Not Resolved]
  - Pain in extremity [Not Recovered/Not Resolved]
  - Adverse reaction [Not Recovered/Not Resolved]
  - Fracture [Not Recovered/Not Resolved]
  - General physical condition abnormal [Not Recovered/Not Resolved]
